FAERS Safety Report 8688630 (Version 3)
Quarter: 2012Q4

REPORT INFORMATION
  Report Type: 
  Country: US (occurrence: US)
  Receive Date: 20120727
  Receipt Date: 20121002
  Transmission Date: 20130627
  Serious: No
  Sender: FDA-Public Use
  Company Number: US-ASTRAZENECA-2011SE64220

PATIENT
  Age: 41 Year
  Sex: Female
  Weight: 54.4 kg

DRUGS (6)
  1. SEROQUEL [Suspect]
     Indication: DEPRESSION
     Route: 048
     Dates: start: 2006
  2. SEROQUEL [Suspect]
     Indication: BIPOLAR DISORDER
     Route: 048
     Dates: start: 2006
  3. SEROQUEL [Suspect]
     Indication: DEPRESSION
     Route: 048
     Dates: start: 2009
  4. SEROQUEL [Suspect]
     Indication: BIPOLAR DISORDER
     Route: 048
     Dates: start: 2009
  5. TRAZODONE [Concomitant]
  6. ZYPREXA [Concomitant]
     Indication: MENTAL DISORDER

REACTIONS (7)
  - Insomnia [Unknown]
  - Mental disorder [Unknown]
  - Impaired work ability [Unknown]
  - Malaise [Not Recovered/Not Resolved]
  - Depression [Not Recovered/Not Resolved]
  - Weight increased [Unknown]
  - Drug dose omission [Unknown]
